FAERS Safety Report 7134528-0 (Version None)
Quarter: 2010Q4

REPORT INFORMATION
  Report Type: 
  Country: None (occurrence: None)
  Receive Date: 20101130
  Receipt Date: 20101130
  Transmission Date: 20110411
  Serious: Yes (Other)
  Sender: FDA-Public Use
  Company Number: None

PATIENT
  Age: 38 Year
  Sex: Female
  Weight: 62.1428 kg

DRUGS (2)
  1. BACTRIM [Suspect]
     Indication: URINARY TRACT INFECTION
     Dosage: 800/160 TWICE A DAY PO
     Route: 048
     Dates: start: 20101105, end: 20101111
  2. PROBIOTIC SUPPLEMENT [Concomitant]

REACTIONS (3)
  - CONSTIPATION [None]
  - DECREASED APPETITE [None]
  - FATIGUE [None]
